FAERS Safety Report 8345573-1 (Version None)
Quarter: 2012Q2

REPORT INFORMATION
  Report Type: 
  Country: None (occurrence: None)
  Receive Date: 20120508
  Receipt Date: 20111201
  Transmission Date: 20120825
  Serious: No
  Sender: FDA-Public Use
  Company Number: US-BAUSCH-2011BL008532

PATIENT
  Age: 47 Year
  Sex: Female

DRUGS (1)
  1. ALREX [Suspect]
     Indication: CONJUNCTIVITIS ALLERGIC
     Route: 047
     Dates: start: 20111127, end: 20111129

REACTIONS (2)
  - CONDITION AGGRAVATED [None]
  - DRUG INEFFECTIVE [None]
